FAERS Safety Report 11124537 (Version 1)
Quarter: 2015Q2

REPORT INFORMATION
  Report Type: Spontaneous
  Country: DE (occurrence: DE)
  Receive Date: 20150520
  Receipt Date: 20150520
  Transmission Date: 20150821
  Serious: Yes (Congenital Anomaly, Other)
  Sender: FDA-Public Use
  Company Number: DE-SUN PHARMACEUTICAL INDUSTRIES LTD-2015RR-97137

PATIENT
  Age: 1 Day
  Sex: Male
  Weight: 3.36 kg

DRUGS (4)
  1. VENLAFAXINE [Suspect]
     Active Substance: VENLAFAXINE HYDROCHLORIDE
     Indication: DEPRESSION
     Dosage: 300 MG, DAILY
     Route: 064
     Dates: start: 20131025, end: 20140726
  2. CYTOTEC [Concomitant]
     Active Substance: MISOPROSTOL
     Indication: LABOUR INDUCTION
     Dosage: UNK
     Route: 064
     Dates: start: 20140724, end: 20140724
  3. PROPANOLOL [Concomitant]
     Active Substance: PROPRANOLOL HYDROCHLORIDE
     Indication: PRODUCT USED FOR UNKNOWN INDICATION
     Dosage: 10 MG, DAILY
     Route: 064
     Dates: start: 20131025, end: 20140726
  4. BUSCOPAN [Concomitant]
     Active Substance: BUTYLSCOPOLAMINE BROMIDE
     Indication: LABOUR PAIN
     Route: 064

REACTIONS (13)
  - Visual impairment [Not Recovered/Not Resolved]
  - Polyhydramnios [None]
  - Meconium in amniotic fluid [None]
  - Pupillary reflex impaired [None]
  - Hypotonia neonatal [None]
  - Dysphagia [Unknown]
  - Trismus [Unknown]
  - Seizure [Unknown]
  - Hypotonia [Unknown]
  - Bradycardia neonatal [None]
  - Oxygen saturation decreased [None]
  - Hypertelorism of orbit [Not Recovered/Not Resolved]
  - Maternal drugs affecting foetus [None]

NARRATIVE: CASE EVENT DATE: 20140726
